FAERS Safety Report 4626771-7 (Version None)
Quarter: 2005Q2

REPORT INFORMATION
  Report Type: 
  Country: None (occurrence: None)
  Receive Date: 20050405
  Receipt Date: 20050321
  Transmission Date: 20051028
  Serious: Yes (Death, Hospitalization, Other)
  Sender: FDA-Public Use
  Company Number: PHFR2005GB01285

PATIENT
  Age: 58 Year
  Sex: Male

DRUGS (1)
  1. CLOZARIL [Suspect]
     Indication: SCHIZOPHRENIA
     Dosage: 200MG/DAY
     Route: 048
     Dates: start: 19960625

REACTIONS (8)
  - BLOOD GLUCOSE INCREASED [None]
  - CARDIAC ARREST [None]
  - CARDIAC FAILURE [None]
  - CHOLELITHIASIS [None]
  - CIRCULATORY COLLAPSE [None]
  - DIABETES MELLITUS [None]
  - MALAISE [None]
  - PANCREATITIS [None]
